FAERS Safety Report 23747062 (Version 2)
Quarter: 2024Q2

REPORT INFORMATION
  Report Type: Spontaneous
  Country: US (occurrence: US)
  Receive Date: 20240416
  Receipt Date: 20240426
  Transmission Date: 20240716
  Serious: Yes (Hospitalization, Disabling)
  Sender: FDA-Public Use
  Company Number: US-AMGEN-USASP2024074165

PATIENT
  Age: 86 Year
  Sex: Female

DRUGS (3)
  1. REPATHA [Suspect]
     Active Substance: EVOLOCUMAB
     Indication: Blood cholesterol increased
     Dosage: 140 MILLIGRAM, Q2WK
     Route: 065
  2. REPATHA [Suspect]
     Active Substance: EVOLOCUMAB
     Route: 065
  3. REPATHA [Concomitant]
     Active Substance: EVOLOCUMAB
     Indication: Product used for unknown indication
     Route: 065

REACTIONS (7)
  - White blood cell count increased [Recovering/Resolving]
  - Weight increased [Recovering/Resolving]
  - Product storage error [Unknown]
  - Product administration error [Unknown]
  - Drug dose omission by device [Unknown]
  - Device difficult to use [Unknown]
  - Device difficult to use [Unknown]

NARRATIVE: CASE EVENT DATE: 20240331
